FAERS Safety Report 11669930 (Version 1)
Quarter: 2015Q4

REPORT INFORMATION
  Report Type: Report from Study
  Country: CA (occurrence: CA)
  Receive Date: 20151027
  Receipt Date: 20151027
  Transmission Date: 20160304
  Serious: Yes (Other)
  Sender: FDA-Public Use
  Company Number: CA-AMGEN-CANSL2015111021

PATIENT
  Age: 56 Year
  Sex: Female

DRUGS (1)
  1. NPLATE [Suspect]
     Active Substance: ROMIPLOSTIM
     Indication: PRODUCT USED FOR UNKNOWN INDICATION
     Dosage: 250 MUG / 0.5 ML, UNK
     Route: 065
     Dates: start: 20151016

REACTIONS (1)
  - Endotracheal intubation [Unknown]

NARRATIVE: CASE EVENT DATE: 201510
